FAERS Safety Report 4608931-4 (Version None)
Quarter: 2005Q1

REPORT INFORMATION
  Report Type: 
  Country: None (occurrence: None)
  Receive Date: 20050315
  Receipt Date: 20050309
  Transmission Date: 20050727
  Serious: Yes (Hospitalization)
  Sender: FDA-Public Use
  Company Number: PHBS2005JP03567

PATIENT
  Age: 63 Year
  Sex: Male

DRUGS (15)
  1. CYCLOSPORINE [Suspect]
     Indication: RENAL TRANSPLANT
     Dosage: 350 MG/D
     Route: 065
  2. CYCLOSPORINE [Suspect]
     Dosage: 150 MG/D
     Route: 065
  3. CYCLOSPORINE [Suspect]
     Dosage: 300 MG/D
     Route: 065
  4. CYCLOSPORINE [Suspect]
     Dosage: 250 MG/D
     Route: 065
  5. CYCLOSPORINE [Suspect]
     Dosage: 200 MG/D
     Route: 065
  6. CYCLOSPORINE [Suspect]
     Dosage: 150 MG/D
     Route: 065
  7. MYCOPHENOLATE MOFETIL [Suspect]
     Indication: RENAL TRANSPLANT
     Dosage: 2 G/D
     Route: 065
  8. MYCOPHENOLATE MOFETIL [Suspect]
     Dosage: 1 G/D
     Route: 065
  9. METHYLPREDNISOLONE [Suspect]
     Indication: RENAL TRANSPLANT
     Dosage: 20 MG/D
     Route: 065
  10. METHYLPREDNISOLONE [Suspect]
     Dosage: 500 MG/D
     Route: 065
  11. METHYLPREDNISOLONE [Suspect]
     Dosage: 125 MG/D
     Route: 065
  12. METHYLPREDNISOLONE [Suspect]
     Dosage: 80 MG/D
     Route: 065
  13. METHYLPREDNISOLONE [Suspect]
     Dosage: 40 MG/D
     Route: 065
  14. METHYLPREDNISOLONE [Suspect]
     Dosage: 20 MG/D
     Route: 065
  15. METHYLPREDNISOLONE [Suspect]
     Dosage: 8 MG/D
     Route: 065

REACTIONS (5)
  - DELIRIUM [None]
  - DELUSION [None]
  - HALLUCINATION [None]
  - HYPONATRAEMIA [None]
  - PSYCHOTIC DISORDER [None]
